FAERS Safety Report 7041891-8 (Version None)
Quarter: 2010Q4

REPORT INFORMATION
  Report Type: 
  Country: None (occurrence: None)
  Receive Date: 20101013
  Receipt Date: 20100512
  Transmission Date: 20110411
  Serious: No
  Sender: FDA-Public Use
  Company Number: US-ASTRAZENECA-2010SE21780

PATIENT
  Age: 68 Year
  Sex: Female
  Weight: 85.3 kg

DRUGS (1)
  1. SYMBICORT [Suspect]
     Indication: CHRONIC OBSTRUCTIVE PULMONARY DISEASE
     Dosage: SYMBICORT 160/4.5 MCG AT A DOSE OF 2 PUFFS BID
     Route: 055
     Dates: start: 20100401

REACTIONS (1)
  - MALAISE [None]
